FAERS Safety Report 21611060 (Version 3)
Quarter: 2023Q1

REPORT INFORMATION
  Report Type: Spontaneous
  Country: JP (occurrence: JP)
  Receive Date: 20221117
  Receipt Date: 20230315
  Transmission Date: 20230418
  Serious: Yes (Hospitalization, Other)
  Sender: FDA-Public Use
  Company Number: JP-BRISTOL-MYERS SQUIBB COMPANY-2022-046112

PATIENT
  Age: 54 Year
  Sex: Female

DRUGS (1)
  1. BREYANZI [Suspect]
     Active Substance: LISOCABTAGENE MARALEUCEL
     Indication: Diffuse large B-cell lymphoma
     Dosage: AS DIRECTED BY THE RFI
     Route: 042
     Dates: start: 20220411

REACTIONS (9)
  - Cytokine release syndrome [Recovering/Resolving]
  - Muscle twitching [Recovered/Resolved]
  - Erythropenia [Not Recovered/Not Resolved]
  - Pneumonia [Recovered/Resolved]
  - Thrombocytopenia [Recovered/Resolved]
  - Leukopenia [Recovered/Resolved]
  - Organising pneumonia [Not Recovered/Not Resolved]
  - Immune effector cell-associated neurotoxicity syndrome [Recovering/Resolving]
  - Graft versus host disease in gastrointestinal tract [Recovering/Resolving]

NARRATIVE: CASE EVENT DATE: 20220411
